FAERS Safety Report 6810500-2 (Version None)
Quarter: 2010Q2

REPORT INFORMATION
  Report Type: 
  Country: None (occurrence: None)
  Receive Date: 20100630
  Receipt Date: 20100623
  Transmission Date: 20101027
  Serious: Yes (Hospitalization)
  Sender: FDA-Public Use
  Company Number: JP-PFIZER INC-2010060883

PATIENT
  Age: 67 Year
  Sex: Female
  Weight: 40.6 kg

DRUGS (11)
  1. SILDENAFIL CITRATE [Suspect]
     Indication: PULMONARY HYPERTENSION
     Dosage: 20 MG, 3X/DAY
     Dates: start: 20100123, end: 20100204
  2. VASOLAN [Concomitant]
     Dosage: 40 MG, 3X/DAY
     Route: 048
  3. ULCERLMIN [Concomitant]
     Dosage: 1 G, 2X/DAY
     Route: 048
  4. FAMOTIDINE [Concomitant]
     Dosage: 20 MG, 2X/DAY
     Route: 048
  5. ALENDRONATE SODIUM [Concomitant]
     Dosage: 35 MG, WEEKLY
     Route: 048
  6. LASIX [Concomitant]
     Dosage: 20 MG, 1X/DAY
     Route: 048
  7. DIGOXIN [Concomitant]
     Dosage: 0.125 MG, 1X/DAY
     Route: 048
  8. GASMOTIN [Concomitant]
     Dosage: 5 MG, 3X/DAY
     Route: 048
  9. MAGNESIUM OXIDE [Concomitant]
     Dosage: 0.5 MG, 2X/DAY
     Route: 048
  10. RIZE [Concomitant]
     Dosage: 5 MG, 1X/DAY
     Route: 048
  11. CALCIUM LACTATE [Concomitant]
     Dosage: 0.4 G, 3X/DAY
     Route: 048

REACTIONS (1)
  - CARDIAC FAILURE [None]
